FAERS Safety Report 20077461 (Version 3)
Quarter: 2022Q1

REPORT INFORMATION
  Report Type: Spontaneous
  Country: US (occurrence: JP)
  Receive Date: 20211116
  Receipt Date: 20220211
  Transmission Date: 20220424
  Serious: Yes (Other)
  Sender: FDA-Public Use
  Company Number: US-ELI_LILLY_AND_COMPANY-JP202111005471

PATIENT
  Age: 77 Year
  Sex: Male

DRUGS (3)
  1. ADCIRCA [Suspect]
     Active Substance: TADALAFIL
     Indication: Pulmonary arterial hypertension
     Dosage: UNK UNK, UNKNOWN
     Route: 065
  2. UPTRAVI [Suspect]
     Active Substance: SELEXIPAG
     Indication: Pulmonary arterial hypertension
     Dosage: 2 MG, DAILY
     Route: 048
     Dates: start: 20201127
  3. OPSUMIT [Concomitant]
     Active Substance: MACITENTAN
     Indication: Pulmonary arterial hypertension
     Dosage: 10 MG, UNKNOWN
     Route: 065

REACTIONS (1)
  - Pulmonary oedema [Recovering/Resolving]

NARRATIVE: CASE EVENT DATE: 20201201
